FAERS Safety Report 7014612-2 (Version None)
Quarter: 2010Q3

REPORT INFORMATION
  Report Type: 
  Country: None (occurrence: None)
  Receive Date: 20100924
  Receipt Date: 20100924
  Transmission Date: 20110219
  Serious: No
  Sender: FDA-Public Use
  Company Number: None

PATIENT
  Age: 51 Year
  Sex: Female
  Weight: 63.5036 kg

DRUGS (1)
  1. ARIXTRA [Suspect]
     Indication: PULMONARY EMBOLISM
     Dosage: 0.6ML 2 TIMES/DAY SQ
     Route: 058
     Dates: start: 20100909, end: 20100917

REACTIONS (2)
  - INJECTION SITE HAEMATOMA [None]
  - SKIN NODULE [None]
